FAERS Safety Report 4905966-9 (Version None)
Quarter: 2006Q1

REPORT INFORMATION
  Report Type: 
  Country: None (occurrence: None)
  Receive Date: 20060206
  Receipt Date: 20060124
  Transmission Date: 20060701
  Serious: Yes (Other)
  Sender: FDA-Public Use
  Company Number: 2006013130

PATIENT
  Sex: Male
  Weight: 99.7913 kg

DRUGS (8)
  1. VIAGRA [Suspect]
     Indication: ERECTILE DYSFUNCTION
  2. INDOCIN [Suspect]
     Indication: PAIN
  3. DIAZEPAM [Concomitant]
  4. HYZAAR [Concomitant]
  5. OMEPRAZOLE [Concomitant]
  6. TRAZODONE HCL [Concomitant]
  7. ALL OTHER THERAPEUTIC PRODUCTS (ALL OTHER THERAPEUTIC PRODUCTS) [Concomitant]
  8. FLECAINIDE ACETATE [Concomitant]

REACTIONS (11)
  - BACK PAIN [None]
  - CERVICAL MYELOPATHY [None]
  - CONDITION AGGRAVATED [None]
  - DRUG INEFFECTIVE [None]
  - FALL [None]
  - GASTRIC ULCER [None]
  - HYPOTENSION [None]
  - INCORRECT DOSE ADMINISTERED [None]
  - NECK PAIN [None]
  - PAIN IN EXTREMITY [None]
  - REFUSAL OF TREATMENT BY PATIENT [None]
